FAERS Safety Report 9870229 (Version 1)
Quarter: 2014Q1

REPORT INFORMATION
  Report Type: Spontaneous
  Country: US (occurrence: None)
  Receive Date: 20140131
  Receipt Date: 20140131
  Transmission Date: 20141002
  Serious: Yes (Life-Threatening)
  Sender: FDA-Public Use
  Company Number: 2014P1000651

PATIENT
  Age: 2 Year
  Sex: 0

DRUGS (1)
  1. CLONIDINE [Suspect]

REACTIONS (1)
  - Accidental exposure to product by child [None]
